FAERS Safety Report 4506941-9 (Version None)
Quarter: 2004Q4

REPORT INFORMATION
  Report Type: 
  Country: None (occurrence: None)
  Receive Date: 20041117
  Receipt Date: 20041110
  Transmission Date: 20050328
  Serious: Yes (Hospitalization)
  Sender: FDA-Public Use
  Company Number: MK200411-0129-1

PATIENT
  Age: 45 Year
  Sex: Female

DRUGS (1)
  1. ANAFRANIL [Suspect]
     Dates: start: 20040815, end: 20040905

REACTIONS (2)
  - HYPERTENSION [None]
  - PHAEOCHROMOCYTOMA [None]
